FAERS Safety Report 4367479-5 (Version None)
Quarter: 2004Q2

REPORT INFORMATION
  Report Type: 
  Country: None (occurrence: None)
  Receive Date: 20040601
  Receipt Date: 20040426
  Transmission Date: 20050107
  Serious: Yes (Death)
  Sender: FDA-Public Use
  Company Number: JP-BRISTOL-MYERS SQUIBB COMPANY-12569463

PATIENT
  Age: 46 Year
  Sex: Male

DRUGS (4)
  1. PARAPLATIN [Suspect]
     Indication: NEOPLASM MALIGNANT
     Route: 042
     Dates: start: 20040326, end: 20040402
  2. TAXOTERE [Suspect]
     Indication: NEOPLASM MALIGNANT
     Route: 042
     Dates: start: 20040326, end: 20040402
  3. DEXAMETHASONE [Concomitant]
     Indication: PREMEDICATION
     Route: 042
     Dates: start: 20040326, end: 20040402
  4. GRANISETRON [Concomitant]
     Route: 042
     Dates: start: 20040326, end: 20040402

REACTIONS (10)
  - ALANINE AMINOTRANSFERASE INCREASED [None]
  - ASPARTATE AMINOTRANSFERASE INCREASED [None]
  - BLOOD CREATININE INCREASED [None]
  - BLOOD LACTATE DEHYDROGENASE INCREASED [None]
  - BLOOD UREA INCREASED [None]
  - HYPOPHARYNGEAL CANCER [None]
  - NAUSEA [None]
  - PNEUMONIA [None]
  - VOMITING [None]
  - WHITE BLOOD CELL COUNT DECREASED [None]
